FAERS Safety Report 16836541 (Version 3)
Quarter: 2021Q3

REPORT INFORMATION
  Report Type: Spontaneous
  Country: DE (occurrence: DE)
  Receive Date: 20190921
  Receipt Date: 20210803
  Transmission Date: 20211014
  Serious: Yes (Death, Other)
  Sender: FDA-Public Use
  Company Number: DE-AMGEN-DEUSP2019153376

PATIENT

DRUGS (2)
  1. IMLYGIC [Suspect]
     Active Substance: TALIMOGENE LAHERPAREPVEC
     Dosage: UNK, Q2WK (MAXIMUM 4 ML OF 10^8 PFU/ML)
     Route: 065
  2. IMLYGIC [Suspect]
     Active Substance: TALIMOGENE LAHERPAREPVEC
     Indication: MALIGNANT MELANOMA
     Dosage: UNK (MAXIMUM 4 ML OF 10^6 PFU/ML)
     Route: 065

REACTIONS (15)
  - Myocardial infarction [Fatal]
  - Ulcer [Unknown]
  - Metastases to lymph nodes [Unknown]
  - Therapy partial responder [Unknown]
  - Fatigue [Unknown]
  - Influenza like illness [Unknown]
  - Headache [Unknown]
  - Oedema peripheral [Unknown]
  - Malignant melanoma [Unknown]
  - Lymphoedema [Unknown]
  - Metastasis [Unknown]
  - Adverse event [Unknown]
  - Pyrexia [Unknown]
  - Chills [Unknown]
  - Injection site pain [Unknown]
